FAERS Safety Report 9419292 (Version 3)
Quarter: 2013Q3

REPORT INFORMATION
  Report Type: Spontaneous
  Country: US (occurrence: US)
  Receive Date: 20130725
  Receipt Date: 20130730
  Transmission Date: 20140515
  Serious: No
  Sender: FDA-Public Use
  Company Number: US-009507513-1307USA012756

PATIENT
  Age: 13 Year
  Sex: Female

DRUGS (1)
  1. COPPERTONE SPORT CONTINUOUS SPRAY SPF 100+ [Suspect]
     Indication: PRODUCT USED FOR UNKNOWN INDICATION
     Dosage: UNK, UNKNOWN
     Route: 061

REACTIONS (4)
  - Skin exfoliation [Unknown]
  - Skin reaction [Unknown]
  - Swelling [Unknown]
  - Product deposit [Unknown]
